FAERS Safety Report 18023193 (Version 2)
Quarter: 2020Q4

REPORT INFORMATION
  Report Type: Spontaneous
  Country: US (occurrence: US)
  Receive Date: 20200714
  Receipt Date: 20201002
  Transmission Date: 20210113
  Serious: Yes (Other)
  Sender: FDA-Public Use
  Company Number: US-SUNOVION-2020SUN002019

PATIENT
  Sex: Male

DRUGS (12)
  1. SEROQUEL [Suspect]
     Active Substance: QUETIAPINE FUMARATE
     Dosage: 100 MG
     Dates: start: 20190507
  2. LATUDA [Suspect]
     Active Substance: LURASIDONE HYDROCHLORIDE
     Indication: BIPOLAR I DISORDER
     Dosage: 60 MG
     Route: 048
     Dates: end: 202008
  3. LATUDA [Suspect]
     Active Substance: LURASIDONE HYDROCHLORIDE
     Dosage: 20 MG
     Route: 048
     Dates: start: 20190220, end: 201910
  4. LATUDA [Suspect]
     Active Substance: LURASIDONE HYDROCHLORIDE
     Dosage: 20 MG
     Route: 048
     Dates: start: 20191114, end: 20200318
  5. SEROQUEL [Suspect]
     Active Substance: QUETIAPINE FUMARATE
     Dosage: 100 MG
  6. WELLBUTRIN [Concomitant]
     Active Substance: BUPROPION HYDROCHLORIDE
     Dosage: 100 MG SR
  7. HYDROXYZINE [Concomitant]
     Active Substance: HYDROXYZINE HYDROCHLORIDE
     Dosage: UNK
     Dates: start: 20190507
  8. LATUDA [Suspect]
     Active Substance: LURASIDONE HYDROCHLORIDE
     Dosage: 40 MG, QD
     Route: 048
     Dates: start: 20200507
  9. AMIODARONE [Concomitant]
     Active Substance: AMIODARONE
     Dosage: 200 MG, BID
     Dates: start: 201910
  10. WELLBUTRIN [Concomitant]
     Active Substance: BUPROPION HYDROCHLORIDE
     Dosage: 100 MG SR, QD
     Dates: start: 20190416
  11. METOPROLOL. [Concomitant]
     Active Substance: METOPROLOL
     Dosage: 12.5 MG, BID
     Dates: start: 201910
  12. HYDROCODONE [Concomitant]
     Active Substance: HYDROCODONE
     Dosage: 5/325 Q 4-6 HRS
     Dates: start: 201910

REACTIONS (15)
  - Affect lability [Unknown]
  - Stress [Unknown]
  - Mood altered [Unknown]
  - Anxiety [Unknown]
  - Therapy interrupted [Unknown]
  - Irritability [Unknown]
  - Tachyphrenia [Unknown]
  - Sedation [Unknown]
  - Agitation [Unknown]
  - Aortic aneurysm [Unknown]
  - Insomnia [Unknown]
  - Nightmare [Unknown]
  - Emotional distress [Unknown]
  - Depression [Unknown]
  - Mood swings [Unknown]
